FAERS Safety Report 4885300-3 (Version None)
Quarter: 2005Q4

REPORT INFORMATION
  Report Type: 
  Country: None (occurrence: None)
  Receive Date: 20051220
  Receipt Date: 20051028
  Transmission Date: 20060501
  Serious: Yes (Other)
  Sender: FDA-Public Use
  Company Number: 423141

PATIENT
  Age: 74 Year
  Sex: Female

DRUGS (1)
  1. BONIVA [Suspect]
     Dosage: ORAL
     Route: 048
     Dates: start: 20051022, end: 20051022

REACTIONS (6)
  - ABDOMINAL PAIN UPPER [None]
  - DIARRHOEA [None]
  - EAR PAIN [None]
  - INFLUENZA [None]
  - PAIN IN EXTREMITY [None]
  - PAIN IN JAW [None]
